FAERS Safety Report 10186545 (Version 2)
Quarter: 2014Q2

REPORT INFORMATION
  Report Type: Report from Study
  Country: BR (occurrence: BR)
  Receive Date: 20140521
  Receipt Date: 20140617
  Transmission Date: 20141212
  Serious: Yes (Hospitalization, Other)
  Sender: FDA-Public Use
  Company Number: PHHY2014BR061063

PATIENT
  Age: 76 Year
  Sex: Male
  Weight: 54 kg

DRUGS (5)
  1. EXELON PATCH [Suspect]
     Indication: DEMENTIA ALZHEIMER^S TYPE
     Dosage: 4.6 MG (PATCH 5 CM2), DAILY (ONE AT NIGHT)
     Route: 062
     Dates: start: 201311
  2. EXELON PATCH [Suspect]
     Indication: PARKINSON^S DISEASE
  3. QUETIAPINE [Concomitant]
     Indication: MENTAL DISORDER
     Dosage: 25 MG, UNK
     Dates: start: 2013
  4. NIMODIPINE [Concomitant]
     Indication: DEMENTIA ALZHEIMER^S TYPE
     Dosage: UNK UKN, UNK
     Dates: start: 2011
  5. NIMODIPINE [Concomitant]
     Indication: VEIN DISORDER

REACTIONS (8)
  - Sepsis [Unknown]
  - Prostate infection [Unknown]
  - Pneumonia [Unknown]
  - Blood pressure systolic decreased [Unknown]
  - Hypotension [Unknown]
  - Prostatic specific antigen increased [Unknown]
  - Arrhythmia [Unknown]
  - Blood pressure abnormal [Unknown]
